FAERS Safety Report 12849489 (Version 3)
Quarter: 2018Q3

REPORT INFORMATION
  Report Type: Spontaneous
  Country: US (occurrence: US)
  Receive Date: 20161014
  Receipt Date: 20180927
  Transmission Date: 20181010
  Serious: Yes (Hospitalization)
  Sender: FDA-Public Use
  Company Number: US-ROCHE-1762709

PATIENT
  Sex: Female

DRUGS (13)
  1. ESBRIET [Suspect]
     Active Substance: PIRFENIDONE
     Dosage: REDUCED DOSE
     Route: 048
  2. FOLIC ACID. [Concomitant]
     Active Substance: FOLIC ACID
  3. CARVEDILOL. [Concomitant]
     Active Substance: CARVEDILOL
  4. LOSARTAN. [Concomitant]
     Active Substance: LOSARTAN
  5. NORVASC [Concomitant]
     Active Substance: AMLODIPINE BESYLATE
  6. IMDUR [Concomitant]
     Active Substance: ISOSORBIDE MONONITRATE
  7. ESBRIET [Suspect]
     Active Substance: PIRFENIDONE
     Indication: IDIOPATHIC PULMONARY FIBROSIS
     Route: 048
     Dates: start: 20160128
  8. ATOVAQUONE. [Concomitant]
     Active Substance: ATOVAQUONE
  9. SPIRONOLACTONE. [Concomitant]
     Active Substance: SPIRONOLACTONE
  10. CLARITIN [Concomitant]
     Active Substance: LORATADINE
  11. ESTRADIOL. [Concomitant]
     Active Substance: ESTRADIOL
  12. SYMBICORT [Concomitant]
     Active Substance: BUDESONIDE\FORMOTEROL FUMARATE DIHYDRATE
  13. BUMETANIDE. [Concomitant]
     Active Substance: BUMETANIDE

REACTIONS (6)
  - Infection [Unknown]
  - Gastritis [Unknown]
  - Dyspepsia [Unknown]
  - Extra dose administered [Unknown]
  - Constipation [Unknown]
  - Gastric disorder [Unknown]
